FAERS Safety Report 4343582-0 (Version None)
Quarter: 2004Q2

REPORT INFORMATION
  Report Type: 
  Country: None (occurrence: None)
  Receive Date: 20040421
  Receipt Date: 20040421
  Transmission Date: 20050107
  Serious: Yes (Death)
  Sender: FDA-Public Use
  Company Number: None

PATIENT
  Age: 60 Year
  Sex: Male
  Weight: 78.0187 kg

DRUGS (2)
  1. THEOPHYLLINE-SR [Suspect]
     Indication: ASTHMA
     Dosage: 300 MG BID ORAL
     Route: 048
  2. LEVAQUIN [Suspect]
     Indication: INFECTION
     Dosage: 500 MG ORAL
     Route: 048
     Dates: start: 20031106, end: 20031109

REACTIONS (6)
  - CHEST PAIN [None]
  - DRUG LEVEL INCREASED [None]
  - DYSPNOEA [None]
  - NAUSEA [None]
  - PULSE ABSENT [None]
  - VENTRICULAR TACHYCARDIA [None]
